FAERS Safety Report 9508109 (Version 1)
Quarter: 2013Q1

REPORT INFORMATION
  Report Type: Spontaneous
  Country: US (occurrence: None)
  Receive Date: 20130305
  Receipt Date: 20130305
  Transmission Date: 20140127
  Serious: Yes (Other)
  Sender: FDA-Public Use
  Company Number: 163-21880-12021143

PATIENT
  Age: 71 Year
  Sex: Male

DRUGS (7)
  1. REVLIMID (LENALIDOMIDE) [Suspect]
     Indication: MYELODYSPLASTIC SYNDROME
     Route: 048
     Dates: start: 20111120
  2. B 12 (CYANOCOBALAMIN) [Concomitant]
  3. GLUCOSAMINE MSN (GLUCOSAMINE W/ METHYLSULFONYLMETHANE) [Concomitant]
  4. CLARITIN [Concomitant]
  5. CALCIUM +MAGNESIUM + ZINC (CALCIUM MAGNESIUM ZINC) [Concomitant]
  6. CALCIUM + D (OS-CAL) [Concomitant]
  7. VITAMINS [Concomitant]

REACTIONS (4)
  - Platelet count decreased [None]
  - Myelodysplastic syndrome [None]
  - Disease progression [None]
  - Contusion [None]
